FAERS Safety Report 22891530 (Version 5)
Quarter: 2025Q2

REPORT INFORMATION
  Report Type: Spontaneous
  Country: BR (occurrence: BR)
  Receive Date: 20230901
  Receipt Date: 20250414
  Transmission Date: 20250717
  Serious: Yes (Other)
  Sender: SANDOZ
  Company Number: BR-002147023-NVSC2023BR010675

PATIENT
  Sex: Female
  Weight: 71 kg

DRUGS (6)
  1. ANASTROZOLE [Suspect]
     Active Substance: ANASTROZOLE
     Indication: Breast cancer
     Dosage: 1 DF, QD
     Route: 048
  2. KISQALI [Suspect]
     Active Substance: RIBOCICLIB SUCCINATE
     Indication: Breast cancer metastatic
     Route: 065
  3. KISQALI [Suspect]
     Active Substance: RIBOCICLIB SUCCINATE
     Route: 065
  4. KISQALI [Suspect]
     Active Substance: RIBOCICLIB SUCCINATE
     Dosage: 3 DF, TID, OTHER (3 TABLETS A DAY, AT NIGHT, FOR 21 DAYS AND A 7- DAY BREAK)
     Route: 065
  5. KISQALI [Suspect]
     Active Substance: RIBOCICLIB SUCCINATE
     Route: 048
  6. KISQALI [Suspect]
     Active Substance: RIBOCICLIB SUCCINATE
     Indication: Breast cancer
     Route: 065
     Dates: start: 20221101

REACTIONS (17)
  - Syncope [Unknown]
  - Malaise [Recovered/Resolved]
  - Retching [Recovered/Resolved]
  - Memory impairment [Not Recovered/Not Resolved]
  - Influenza [Recovered/Resolved]
  - Eating disorder [Unknown]
  - Skin fissures [Unknown]
  - Dry skin [Unknown]
  - Abdominal discomfort [Recovered/Resolved]
  - Decreased appetite [Unknown]
  - Malnutrition [Unknown]
  - Nausea [Recovered/Resolved]
  - Vomiting [Recovered/Resolved]
  - Alopecia [Unknown]
  - Fatigue [Recovered/Resolved]
  - Asthenia [Recovered/Resolved]
  - Head discomfort [Recovered/Resolved]
